FAERS Safety Report 4328441-1 (Version None)
Quarter: 2004Q1

REPORT INFORMATION
  Report Type: 
  Country: None (occurrence: None)
  Receive Date: 20040324
  Receipt Date: 20030917
  Transmission Date: 20041129
  Serious: Yes (Hospitalization)
  Sender: FDA-Public Use
  Company Number: K200301539

PATIENT
  Sex: Male

DRUGS (7)
  1. ALTACE [Suspect]
     Indication: HYPERTENSION
     Dosage: 2.5 MG, QD, ORAL
     Route: 048
     Dates: end: 20030916
  2. LANOXIN [Concomitant]
  3. IMDUR [Concomitant]
  4. ASPIRIN ^BAYER^ (ACETYLSALICYCLIC ACID) [Concomitant]
  5. LOPRESSOR [Concomitant]
  6. PLAVIX [Concomitant]
  7. LIPITOR [Concomitant]

REACTIONS (2)
  - ANGIONEUROTIC OEDEMA [None]
  - PHARYNGEAL OEDEMA [None]
